FAERS Safety Report 4360107-4 (Version None)
Quarter: 2004Q2

REPORT INFORMATION
  Report Type: 
  Country: None (occurrence: None)
  Receive Date: 20040519
  Receipt Date: 20030710
  Transmission Date: 20050107
  Serious: Yes (Hospitalization)
  Sender: FDA-Public Use
  Company Number: IT-BRISTOL-MYERS SQUIBB COMPANY-12322277

PATIENT
  Age: 37 Year
  Sex: Male

DRUGS (6)
  1. ATAZANAVIR [Suspect]
     Indication: HIV INFECTION
     Dosage: INTERRUPTED ON 05 JUL 2003/RESTARTED ON 24-JUL-2003
     Dates: start: 20021217
  2. DIDANOSINE [Suspect]
     Indication: HIV INFECTION
     Dates: start: 20030724
  3. STAVUDINE [Suspect]
     Indication: HIV INFECTION
     Dosage: INTERRUPTED ON 05 JUL 2003. NEVER RESTARTED.
     Dates: start: 20021217, end: 20030705
  4. LAMIVUDINE [Suspect]
     Indication: HIV INFECTION
     Dosage: INTERRUPTED ON 05 JUL 2003/RESTARTED ON 24-JUL-2003
     Dates: start: 20021217
  5. SAQUINAVIR [Suspect]
     Indication: HIV INFECTION
     Dosage: INTERRUPTED ON 05 JUL 2003/RESTARTED ON 24-JUL-2003
     Dates: start: 20021217
  6. TENOFOVIR [Suspect]
     Indication: HIV INFECTION
     Dosage: INTERRUPTED ON 05 JUL 2003/RESTARTED ON 24-JUL-2003
     Dates: start: 20021217

REACTIONS (4)
  - ABDOMINAL PAIN UPPER [None]
  - DIARRHOEA [None]
  - PNEUMONIA [None]
  - PYREXIA [None]
